FAERS Safety Report 24459620 (Version 1)
Quarter: 2024Q4

REPORT INFORMATION
  Report Type: Report from Study
  Country: IT (occurrence: IT)
  Receive Date: 20241018
  Receipt Date: 20241018
  Transmission Date: 20250115
  Serious: No
  Sender: ROCHE
  Company Number: IT-ROCHE-3539699

PATIENT
  Age: 65 Year
  Sex: Male

DRUGS (5)
  1. RITUXIMAB [Suspect]
     Active Substance: RITUXIMAB
     Indication: Castleman^s disease
     Dosage: 6 CYCLES (ENDED DEC/2019)
     Route: 065
  2. CYCLOPHOSPHAMIDE [Concomitant]
     Active Substance: CYCLOPHOSPHAMIDE
     Indication: Castleman^s disease
     Dosage: 6 CYCLES (ENDED DEC/2019)
  3. VINCRISTINE [Concomitant]
     Active Substance: VINCRISTINE
     Indication: Castleman^s disease
     Dosage: 6 CYCLES (ENDED DEC/2019)
  4. PREDNISONE [Concomitant]
     Active Substance: PREDNISONE
     Indication: Castleman^s disease
     Dosage: 6 CYCLES (ENDED DEC/2019)
  5. SILTUXIMAB [Concomitant]
     Active Substance: SILTUXIMAB
     Indication: Castleman^s disease

REACTIONS (2)
  - Off label use [Unknown]
  - No adverse event [Unknown]
